FAERS Safety Report 14467423 (Version 3)
Quarter: 2018Q2

REPORT INFORMATION
  Report Type: Spontaneous
  Country: US (occurrence: US)
  Receive Date: 20180131
  Receipt Date: 20180516
  Transmission Date: 20180711
  Serious: Yes (Hospitalization, Other)
  Sender: FDA-Public Use
  Company Number: US-009507513-1801USA008757

PATIENT
  Age: 37 Year
  Sex: Female
  Weight: 47.62 kg

DRUGS (2)
  1. NEXPLANON [Suspect]
     Active Substance: ETONOGESTREL
     Indication: CONTRACEPTION
     Dosage: IMPLANT IN LEFT ARM, 3 YEAR
     Route: 059
     Dates: start: 20171109, end: 20171212
  2. NEXPLANON [Suspect]
     Active Substance: ETONOGESTREL
     Dosage: IMPLANT IN LEFT ARM, 3 YEAR
     Route: 059
     Dates: start: 2014, end: 20171109

REACTIONS (6)
  - Device embolisation [Recovered/Resolved]
  - Pain in extremity [Unknown]
  - Complication associated with device [Recovered/Resolved]
  - Hypoaesthesia [Unknown]
  - Interventional procedure [Recovered/Resolved]
  - Paraesthesia [Unknown]

NARRATIVE: CASE EVENT DATE: 201711
